FAERS Safety Report 20430645 (Version 1)
Quarter: 2022Q1

REPORT INFORMATION
  Report Type: Report from Study
  Country: FR (occurrence: FR)
  Receive Date: 20220204
  Receipt Date: 20220204
  Transmission Date: 20220423
  Serious: Yes (Other)
  Sender: FDA-Public Use
  Company Number: FR-SERVIER-S21004709

PATIENT

DRUGS (10)
  1. PEGASPARGASE [Suspect]
     Active Substance: PEGASPARGASE
     Indication: Acute lymphocytic leukaemia
     Dosage: 3450 IU, QD ON D4 AND D43
     Route: 042
     Dates: start: 20210212, end: 20210330
  2. ADRIAMYCIN [Concomitant]
     Active Substance: DOXORUBICIN HYDROCHLORIDE
     Indication: Acute lymphocytic leukaemia
     Dosage: 35 MG ON D1, D8, AND D15
     Route: 042
     Dates: start: 20210209, end: 20210330
  3. TN UNSPECIFIED [Concomitant]
     Indication: Acute lymphocytic leukaemia
     Dosage: 2 MG ON D1, D8, D15, AND D43
     Route: 042
     Dates: start: 20210209, end: 20210330
  4. TN UNSPECIFIED [Concomitant]
     Indication: Acute lymphocytic leukaemia
     Dosage: 13.5 MG ON D1 TO D7, AND D15 TO D21
     Route: 048
     Dates: start: 20210209, end: 20210301
  5. TN UNSPECIFIED [Concomitant]
     Indication: Acute lymphocytic leukaemia
     Dosage: 1380 MG ON D29
     Route: 042
     Dates: start: 20210316
  6. TN UNSPECIFIED [Concomitant]
     Indication: Acute lymphocytic leukaemia
     Dosage: 100 MG ON D29 TO D42
     Route: 048
     Dates: start: 20210316, end: 20210329
  7. TN UNSPECIFIED [Concomitant]
     Indication: Acute lymphocytic leukaemia
     Dosage: 104 MG ON D31 TO D34, AND D38 TO D41
     Route: 042
     Dates: start: 20210218, end: 20210328
  8. TN UNSPECIFIED [Concomitant]
     Dosage: 30 MG, ON D4 AND D31
     Route: 037
     Dates: start: 20210212, end: 20210318
  9. TN UNSPECIFIED [Concomitant]
     Indication: Acute lymphocytic leukaemia
     Dosage: 15 MG, ON D4 AND D31
     Route: 037
     Dates: start: 20210212, end: 20210318
  10. TN UNSPECIFIED [Concomitant]
     Indication: Acute lymphocytic leukaemia
     Dosage: 15 MG, ON D4 AND D31
     Route: 037
     Dates: start: 20210212, end: 20210318

REACTIONS (1)
  - Acute myeloid leukaemia [Unknown]

NARRATIVE: CASE EVENT DATE: 20210429
